FAERS Safety Report 25227465 (Version 1)
Quarter: 2025Q2

REPORT INFORMATION
  Report Type: Spontaneous
  Country: AT (occurrence: AT)
  Receive Date: 20250422
  Receipt Date: 20250422
  Transmission Date: 20250717
  Serious: Yes (Hospitalization)
  Sender: IPSEN BIOPHARMACEUTICALS, INC.
  Company Number: AT-SERVIER-S25004668

PATIENT
  Age: 50 Year
  Sex: Female

DRUGS (9)
  1. ONIVYDE [Suspect]
     Active Substance: IRINOTECAN HYDROCHLORIDE
     Indication: Pancreatic carcinoma metastatic
     Dosage: 50 MG/M2, EVERY 2 WEEKS
     Route: 042
     Dates: start: 20250220, end: 20250220
  2. ONIVYDE [Suspect]
     Active Substance: IRINOTECAN HYDROCHLORIDE
     Dosage: 34 MG/M2, EVERY 2 WEEKS
     Route: 042
     Dates: start: 20250306, end: 20250321
  3. LEUCOVORIN [Concomitant]
     Active Substance: LEUCOVORIN\LEUCOVORIN CALCIUM
     Indication: Pancreatic carcinoma metastatic
     Dosage: 400 MG/M2, EVERY 2 WEEKS
     Route: 042
     Dates: start: 20250220, end: 20250220
  4. LEUCOVORIN [Concomitant]
     Active Substance: LEUCOVORIN\LEUCOVORIN CALCIUM
     Dosage: 300 MG/M2, EVERY 2 WEEKS
     Route: 042
     Dates: start: 20250306, end: 20250321
  5. FLUOROURACIL [Concomitant]
     Active Substance: FLUOROURACIL
     Indication: Pancreatic carcinoma metastatic
     Dosage: 2400 MG/M2, EVERY 2 WEEKS
     Route: 042
     Dates: start: 20250220, end: 20250220
  6. FLUOROURACIL [Concomitant]
     Active Substance: FLUOROURACIL
     Dosage: 1800 MG/M2, EVERY 2 WEEKS
     Route: 042
     Dates: start: 20250306, end: 20250321
  7. OXALIPLATIN [Concomitant]
     Active Substance: OXALIPLATIN
     Indication: Pancreatic carcinoma metastatic
     Dosage: 60 MG/M2, EVERY 2 WEEKS
     Route: 042
     Dates: start: 20250220, end: 20250220
  8. OXALIPLATIN [Concomitant]
     Active Substance: OXALIPLATIN
     Dosage: 45 MG/M2, EVERY 2 WEEKS
     Route: 042
     Dates: start: 20250306, end: 20250321
  9. LOPERAMIDE HYDROCHLORIDE [Concomitant]
     Active Substance: LOPERAMIDE HYDROCHLORIDE
     Indication: Prophylaxis against diarrhoea
     Route: 048
     Dates: start: 20250220

REACTIONS (7)
  - Diarrhoea [Recovered/Resolved]
  - Nausea [Recovered/Resolved]
  - Hypokalaemia [Recovered/Resolved]
  - Renal impairment [Recovered/Resolved]
  - Diarrhoea [Recovered/Resolved]
  - Nausea [Recovered/Resolved]
  - Diarrhoea [Recovered/Resolved]

NARRATIVE: CASE EVENT DATE: 20250227
